FAERS Safety Report 4972742-0 (Version None)
Quarter: 2006Q2

REPORT INFORMATION
  Report Type: 
  Country: None (occurrence: None)
  Receive Date: 20060414
  Receipt Date: 20060405
  Transmission Date: 20061013
  Serious: Yes (Hospitalization, Other)
  Sender: FDA-Public Use
  Company Number: GB-JNJFOC-20060301118

PATIENT
  Sex: Male
  Weight: 125 kg

DRUGS (9)
  1. REMICADE [Suspect]
     Indication: RHEUMATOID ARTHRITIS
     Route: 042
  2. METHOTREXATE [Concomitant]
  3. PREDNISOLONE [Concomitant]
  4. ACECLOFENAC [Concomitant]
  5. BUPRENORPHINE HCL [Concomitant]
  6. FOLIC ACID [Concomitant]
  7. REMEDEINE [Concomitant]
  8. REMEDEINE [Concomitant]
  9. TRAMADOL [Concomitant]

REACTIONS (2)
  - ARTHRALGIA [None]
  - JOINT STIFFNESS [None]
